FAERS Safety Report 18306998 (Version 1)
Quarter: 2020Q3

REPORT INFORMATION
  Report Type: Spontaneous
  Country: SE (occurrence: SE)
  Receive Date: 20200924
  Receipt Date: 20200924
  Transmission Date: 20201103
  Serious: Yes (Other)
  Sender: FDA-Public Use
  Company Number: SE-BAYER-2020-194112

PATIENT
  Age: 18 Year
  Sex: Female
  Weight: 49 kg

DRUGS (1)
  1. YASMINELLE [Suspect]
     Active Substance: DROSPIRENONE
     Indication: CONTRACEPTION
     Dosage: 1 DF, QD
     Route: 048
     Dates: start: 2009, end: 201608

REACTIONS (8)
  - Withdrawal syndrome [Recovered/Resolved with Sequelae]
  - Irritability [Recovered/Resolved]
  - Hormone level abnormal [Recovered/Resolved with Sequelae]
  - Depressed mood [Recovered/Resolved]
  - Anhedonia [Recovered/Resolved]
  - Psychiatric symptom [Recovered/Resolved]
  - Premenstrual syndrome [Recovered/Resolved]
  - Acne [Recovered/Resolved with Sequelae]

NARRATIVE: CASE EVENT DATE: 2009
